FAERS Safety Report 7631820-8 (Version None)
Quarter: 2011Q3

REPORT INFORMATION
  Report Type: 
  Country: None (occurrence: None)
  Receive Date: 20110725
  Receipt Date: 20110406
  Transmission Date: 20111222
  Serious: No
  Sender: FDA-Public Use
  Company Number: US-BRISTOL-MYERS SQUIBB COMPANY-15657414

PATIENT
  Age: 84 Year
  Sex: Female

DRUGS (2)
  1. PREDNISONE [Suspect]
     Indication: NASOPHARYNGITIS
  2. COUMADIN [Suspect]
     Dosage: 1 DF=6.5 2.5MG  TONIGHT 6APR11 AND 7APR11 AUTHORIZATION NO:9-218

REACTIONS (2)
  - UPPER RESPIRATORY TRACT INFECTION [None]
  - INTERNATIONAL NORMALISED RATIO INCREASED [None]
